FAERS Safety Report 8496138-2 (Version None)
Quarter: 2012Q3

REPORT INFORMATION
  Report Type: 
  Country: None (occurrence: None)
  Receive Date: 20120709
  Receipt Date: 20120705
  Transmission Date: 20120928
  Serious: Yes (Hospitalization)
  Sender: FDA-Public Use
  Company Number: US-BAYER-2012-067500

PATIENT
  Age: 61 Year
  Sex: Female

DRUGS (1)
  1. MIRENA [Suspect]

REACTIONS (6)
  - PRURITUS [None]
  - ANAPHYLACTIC REACTION [None]
  - BLOOD PRESSURE DECREASED [None]
  - CONFUSIONAL STATE [None]
  - URTICARIA [None]
  - RASH MACULAR [None]
